FAERS Safety Report 5255109-X (Version None)
Quarter: 2007Q1

REPORT INFORMATION
  Report Type: 
  Country: None (occurrence: None)
  Receive Date: 20070228
  Receipt Date: 20070214
  Transmission Date: 20070707
  Serious: Yes (Other)
  Sender: FDA-Public Use
  Company Number: 2007000292

PATIENT
  Age: 46 Year
  Sex: Female

DRUGS (3)
  1. TARCEVA [Suspect]
     Indication: LUNG NEOPLASM MALIGNANT
     Dosage: UNK, ORAL
     Route: 048
  2. LEVOTHYROXINE SODIUM [Concomitant]
  3. MORPHINE SULFATE INJ [Concomitant]

REACTIONS (1)
  - HYPOTHYROIDISM [None]
